FAERS Safety Report 9280537 (Version 1)
Quarter: 2013Q1

REPORT INFORMATION
  Report Type: Spontaneous
  Country: US (occurrence: None)
  Receive Date: 20130228
  Receipt Date: 20130228
  Transmission Date: 20140127
  Serious: Yes (Other)
  Sender: FDA-Public Use
  Company Number: 91561

PATIENT
  Sex: Female

DRUGS (1)
  1. BENZOYL PEROXIDE [Suspect]
     Indication: ACNE
     Route: 061
     Dates: start: 20130201, end: 20130204

REACTIONS (6)
  - Urticaria [None]
  - Urticaria [None]
  - Pruritus [None]
  - Erythema [None]
  - Burning sensation [None]
  - Hypersensitivity [None]
